FAERS Safety Report 6278358-0 (Version None)
Quarter: 2009Q3

REPORT INFORMATION
  Report Type: 
  Country: None (occurrence: None)
  Receive Date: 20090722
  Receipt Date: 20090713
  Transmission Date: 20100115
  Serious: Yes (Other)
  Sender: FDA-Public Use
  Company Number: AU-ASTRAZENECA-2009SE05256

PATIENT
  Age: 20173 Day
  Sex: Female
  Weight: 68 kg

DRUGS (2)
  1. SEROQUEL [Suspect]
     Route: 048
     Dates: start: 20060615
  2. PROZAC [Concomitant]
     Dates: start: 20060815

REACTIONS (1)
  - NEUTROPENIA [None]
